FAERS Safety Report 10078009 (Version 2)
Quarter: 2014Q2

REPORT INFORMATION
  Report Type: Report from Study
  Country: US (occurrence: US)
  Receive Date: 20140415
  Receipt Date: 20140507
  Transmission Date: 20141212
  Serious: Yes (Hospitalization)
  Sender: FDA-Public Use
  Company Number: US-BIOGENIDEC-2014BI034257

PATIENT
  Age: 60 Year
  Sex: Female

DRUGS (1)
  1. TYSABRI [Suspect]
     Indication: MULTIPLE SCLEROSIS
     Route: 042
     Dates: start: 20121114, end: 20140305

REACTIONS (4)
  - Knee arthroplasty [Recovered/Resolved]
  - Joint stiffness [Not Recovered/Not Resolved]
  - Balance disorder [Not Recovered/Not Resolved]
  - Joint adhesion [Not Recovered/Not Resolved]
